FAERS Safety Report 25863783 (Version 1)
Quarter: 2025Q3

REPORT INFORMATION
  Report Type: Spontaneous
  Country: JP (occurrence: JP)
  Receive Date: 20250930
  Receipt Date: 20250930
  Transmission Date: 20251020
  Serious: Yes (Other)
  Sender: ANI
  Company Number: JP-ANIPHARMA-2025-JP-000137

PATIENT
  Age: 77 Year
  Sex: Male

DRUGS (1)
  1. BICALUTAMIDE [Suspect]
     Active Substance: BICALUTAMIDE
     Indication: Product used for unknown indication

REACTIONS (11)
  - Renal impairment [Unknown]
  - Autonomic nervous system imbalance [Unknown]
  - Cardiovascular disorder [Unknown]
  - Prostate cancer recurrent [Unknown]
  - Gynaecomastia [Unknown]
  - Hepatitis fulminant [Unknown]
  - Hot flush [Unknown]
  - Hepatic steatosis [Unknown]
  - Weight decreased [Unknown]
  - Hepatic function abnormal [Unknown]
  - Cardiac valve disease [Unknown]
